FAERS Safety Report 5213194-5 (Version None)
Quarter: 2007Q1

REPORT INFORMATION
  Report Type: 
  Country: None (occurrence: None)
  Receive Date: 20070119
  Receipt Date: 20070112
  Transmission Date: 20070707
  Serious: Yes (Death, Life-Threatening)
  Sender: FDA-Public Use
  Company Number: FR-GLAXOSMITHKLINE-B0453825A

PATIENT
  Age: 1 Year
  Sex: Male

DRUGS (4)
  1. COMBIVIR [Suspect]
  2. RETROVIR [Suspect]
  3. BACTRIM [Suspect]
     Route: 065
  4. KALETRA [Suspect]

REACTIONS (3)
  - DRUG EXPOSURE DURING PREGNANCY [None]
  - MALAISE [None]
  - PREGNANCY [None]
